FAERS Safety Report 10206873 (Version 3)
Quarter: 2014Q3

REPORT INFORMATION
  Report Type: Spontaneous
  Country: JP (occurrence: JP)
  Receive Date: 20140530
  Receipt Date: 20140717
  Transmission Date: 20150326
  Serious: Yes (Other)
  Sender: FDA-Public Use
  Company Number: PHHY2014JP065786

PATIENT
  Age: 63 Year
  Sex: Male

DRUGS (11)
  1. EXFORGE [Concomitant]
     Active Substance: AMLODIPINE BESYLATE\VALSARTAN
     Dosage: 1 DF, UNK
     Route: 048
  2. ONBREZ [Suspect]
     Active Substance: INDACATEROL
     Indication: CHRONIC OBSTRUCTIVE PULMONARY DISEASE
     Dosage: 150 UG, DAILY
     Route: 055
     Dates: start: 20140416, end: 20140416
  3. SIGMART [Concomitant]
     Active Substance: NICORANDIL
     Dosage: UNK UKN, UNK
  4. SEIBULE [Concomitant]
     Active Substance: MIGLITOL
     Dosage: UNK UKN, UNK
     Route: 048
  5. ONBREZ [Suspect]
     Active Substance: INDACATEROL
     Dosage: UNK UKN, UNK
     Route: 055
  6. BUFFERIN [Concomitant]
     Active Substance: ASPIRIN
     Dosage: 330 MG, UNK
     Route: 048
  7. HERBESSER [Concomitant]
     Active Substance: DILTIAZEM HYDROCHLORIDE
     Dosage: UNK UKN, UNK
     Route: 048
  8. LANSOPRAZOLE. [Concomitant]
     Active Substance: LANSOPRAZOLE
     Dosage: UNK UKN, UNK
     Route: 048
  9. MUCOSTA [Concomitant]
     Active Substance: REBAMIPIDE
     Dosage: UNK UKN, UNK
  10. GLACTIV [Concomitant]
     Active Substance: SITAGLIPTIN
     Dosage: UNK UKN, UNK
     Route: 048
  11. FRANDOL S [Concomitant]
     Dosage: UNK UKN, UNK

REACTIONS (1)
  - Syncope [Recovered/Resolved]

NARRATIVE: CASE EVENT DATE: 20140416
